FAERS Safety Report 9220051 (Version 1)
Quarter: 2013Q1

REPORT INFORMATION
  Report Type: Spontaneous
  Country: US (occurrence: None)
  Receive Date: 20120831
  Receipt Date: 20120831
  Transmission Date: 20140127
  Serious: No
  Sender: FDA-Public Use
  Company Number: 1000030685

PATIENT
  Sex: Female

DRUGS (2)
  1. DALIRESP [Suspect]
     Indication: CHRONIC OBSTRUCTIVE PULMONARY DISEASE
     Route: 048
     Dates: start: 201205
  2. BROVANA (ARFORMOTEROL TARTRATE) (ARFORMOTEROL TARTRATE) [Concomitant]

REACTIONS (2)
  - Diarrhoea [None]
  - Alopecia [None]
